FAERS Safety Report 10390334 (Version 3)
Quarter: 2014Q3

REPORT INFORMATION
  Report Type: Spontaneous
  Country: US (occurrence: US)
  Receive Date: 20140818
  Receipt Date: 20140919
  Transmission Date: 20150326
  Serious: Yes (Other)
  Sender: FDA-Public Use
  Company Number: US-PFIZER INC-2014226220

PATIENT
  Sex: Female

DRUGS (1)
  1. RAPAMUNE [Suspect]
     Active Substance: SIROLIMUS
     Dosage: UNK

REACTIONS (6)
  - Skin cancer [Unknown]
  - Neoplasm progression [Unknown]
  - Malaise [Unknown]
  - Neoplasm recurrence [Unknown]
  - Lymphoma cutis [Unknown]
  - Peripheral swelling [Unknown]
